FAERS Safety Report 4539602-0 (Version None)
Quarter: 2004Q4

REPORT INFORMATION
  Report Type: 
  Country: None (occurrence: None)
  Receive Date: 20041228
  Receipt Date: 20041125
  Transmission Date: 20050328
  Serious: Yes (Death, Other)
  Sender: FDA-Public Use
  Company Number: PHBS2004JP15851

PATIENT
  Age: 45 Year
  Sex: Female

DRUGS (4)
  1. MELPHALAN [Concomitant]
     Indication: CORD BLOOD TRANSPLANT THERAPY
     Dosage: 140, MG/M2
  2. METHOTREXATE [Concomitant]
     Indication: CORD BLOOD TRANSPLANT THERAPY
  3. IRRADIATION [Concomitant]
  4. CYCLOSPORINE [Suspect]
     Indication: CORD BLOOD TRANSPLANT THERAPY
     Route: 065

REACTIONS (7)
  - ALLODYNIA [None]
  - DEPRESSED LEVEL OF CONSCIOUSNESS [None]
  - ENCEPHALOPATHY [None]
  - HYPERAESTHESIA [None]
  - INFECTION [None]
  - PAIN [None]
  - PRURITUS GENERALISED [None]
